FAERS Safety Report 5247811-0 (Version None)
Quarter: 2007Q1

REPORT INFORMATION
  Report Type: 
  Country: None (occurrence: None)
  Receive Date: 20070227
  Receipt Date: 20070227
  Transmission Date: 20070707
  Serious: Yes (Hospitalization)
  Sender: FDA-Public Use
  Company Number: None

PATIENT
  Age: 17 Year
  Sex: Female
  Weight: 62.5964 kg

DRUGS (1)
  1. ORTHO TRI-CYCLEN [Suspect]
     Indication: ENDOMETRIOSIS
     Dosage: DAILY PO
     Route: 048

REACTIONS (4)
  - DEHYDRATION [None]
  - LETHARGY [None]
  - SINUS HEADACHE [None]
  - SUPERIOR SAGITTAL SINUS THROMBOSIS [None]
